FAERS Safety Report 6628386-8 (Version None)
Quarter: 2010Q1

REPORT INFORMATION
  Report Type: 
  Country: None (occurrence: None)
  Receive Date: 20100311
  Receipt Date: 20100304
  Transmission Date: 20100710
  Serious: Yes (Hospitalization)
  Sender: FDA-Public Use
  Company Number: US-RB-004036-10

PATIENT
  Age: 54 Year
  Sex: Female

DRUGS (4)
  1. SUBUTEX [Suspect]
     Indication: DEPRESSION
     Dosage: 8 MG TWICE A WEEK
     Route: 048
     Dates: start: 20030101, end: 20090101
  2. SUBUTEX [Suspect]
     Dosage: 8 MG TWICE A WEEK
     Route: 060
     Dates: start: 20090101, end: 20100208
  3. SUBUTEX [Suspect]
     Route: 060
     Dates: start: 20100301
  4. SYNTHROID [Concomitant]
     Indication: HYPOTHYROIDISM
     Dosage: DOSING DETAILS UNKNOWN
     Route: 065

REACTIONS (5)
  - CHEST PAIN [None]
  - CLAVICLE FRACTURE [None]
  - INCORRECT ROUTE OF DRUG ADMINISTRATION [None]
  - MYOCARDIAL INFARCTION [None]
  - ROAD TRAFFIC ACCIDENT [None]
